FAERS Safety Report 5675737-7 (Version None)
Quarter: 2008Q1

REPORT INFORMATION
  Report Type: 
  Country: None (occurrence: None)
  Receive Date: 20080321
  Receipt Date: 20080314
  Transmission Date: 20080703
  Serious: Yes (Other)
  Sender: FDA-Public Use
  Company Number: PHEH2008US02621

PATIENT
  Age: 72 Year
  Sex: Female

DRUGS (3)
  1. DIOVAN [Suspect]
     Dosage: 160 MG, UNK
     Dates: start: 20080120
  2. DIOVAN [Suspect]
     Dosage: 320 MG, UNK
     Dates: start: 20080201
  3. STEROIDS NOS [Concomitant]
     Indication: PRURITUS
     Route: 061

REACTIONS (13)
  - ALOPECIA [None]
  - ASTHENIA [None]
  - BLOOD PRESSURE INADEQUATELY CONTROLLED [None]
  - DIZZINESS [None]
  - FATIGUE [None]
  - GALLBLADDER DISORDER [None]
  - HAIR TEXTURE ABNORMAL [None]
  - HIP ARTHROPLASTY [None]
  - HYPERTENSION [None]
  - INSOMNIA [None]
  - MYALGIA [None]
  - PRURITUS [None]
  - VEIN PAIN [None]
